FAERS Safety Report 8161013-X (Version None)
Quarter: 2012Q1

REPORT INFORMATION
  Report Type: 
  Country: None (occurrence: None)
  Receive Date: 20120224
  Receipt Date: 20120126
  Transmission Date: 20120608
  Serious: Yes (Disabling)
  Sender: FDA-Public Use
  Company Number: DK-GE HEALTHCARE MEDICAL DIAGNOSTICS-OSCN-NO-1111S-0235

PATIENT

DRUGS (1)
  1. OMNISCAN [Suspect]
     Indication: MULTIPLE MYELOMA
     Route: 042
     Dates: start: 20051207, end: 20051207

REACTIONS (2)
  - JOINT STIFFNESS [None]
  - MOBILITY DECREASED [None]
